FAERS Safety Report 25523847 (Version 1)
Quarter: 2025Q3

REPORT INFORMATION
  Report Type: Spontaneous
  Country: CN (occurrence: CN)
  Receive Date: 20250707
  Receipt Date: 20250707
  Transmission Date: 20251021
  Serious: Yes (Life-Threatening, Other)
  Sender: ORGANON
  Company Number: CN-ORGANON-O2507CHN000194

PATIENT
  Age: 19 Year
  Sex: Male
  Weight: 64 kg

DRUGS (1)
  1. DIPROSPAN [Suspect]
     Active Substance: BETAMETHASONE DIPROPIONATE\BETAMETHASONE SODIUM PHOSPHATE
     Indication: Dermatitis atopic
     Dosage: 1 VIAL, QD, INTRAMUSCULAR INJECTION||
     Route: 030
     Dates: start: 20250619, end: 20250619

REACTIONS (2)
  - Anaphylactic shock [Recovering/Resolving]
  - Injection site haemorrhage [Recovered/Resolved]

NARRATIVE: CASE EVENT DATE: 20250619
